FAERS Safety Report 19072216 (Version 1)
Quarter: 2021Q1

REPORT INFORMATION
  Report Type: Spontaneous
  Country: US (occurrence: US)
  Receive Date: 20210329
  Receipt Date: 20210329
  Transmission Date: 20210420
  Serious: Yes (Hospitalization)
  Sender: FDA-Public Use
  Company Number: None

PATIENT
  Age: 18 Year
  Sex: Female

DRUGS (2)
  1. MEKTOVI [Suspect]
     Active Substance: BINIMETINIB
     Route: 048
     Dates: start: 20210211
  2. BRAFTOVI [Concomitant]
     Active Substance: ENCORAFENIB

REACTIONS (2)
  - Hyponatraemia [None]
  - Dystonia [None]

NARRATIVE: CASE EVENT DATE: 20210308
